FAERS Safety Report 6698524-X (Version None)
Quarter: 2010Q2

REPORT INFORMATION
  Report Type: 
  Country: None (occurrence: None)
  Receive Date: 20100427
  Receipt Date: 20100419
  Transmission Date: 20101027
  Serious: Yes (Other)
  Sender: FDA-Public Use
  Company Number: US-AMGEN-QUU407218

PATIENT
  Sex: Female

DRUGS (11)
  1. ARANESP [Suspect]
     Indication: MYELODYSPLASTIC SYNDROME
     Dates: start: 20090115, end: 20100403
  2. FERROUS SULFATE TAB [Concomitant]
  3. HYDROCHLOROTHIAZIDE [Concomitant]
  4. ENALAPRIL MALEATE [Concomitant]
  5. PRAVASTATIN [Concomitant]
  6. VITAMIN B-12 [Concomitant]
  7. METFORMIN [Concomitant]
  8. OS-CAL [Concomitant]
  9. PREVACID [Concomitant]
  10. ANADROL [Concomitant]
  11. FOLIC ACID [Concomitant]

REACTIONS (2)
  - APLASIA PURE RED CELL [None]
  - THERAPEUTIC RESPONSE DECREASED [None]
